FAERS Safety Report 10062211 (Version 1)
Quarter: 2014Q2

REPORT INFORMATION
  Report Type: Spontaneous
  Country: CA (occurrence: CA)
  Receive Date: 20140407
  Receipt Date: 20140407
  Transmission Date: 20141212
  Serious: Yes (Other)
  Sender: FDA-Public Use
  Company Number: CA-ROCHE-1374698

PATIENT
  Age: 17 Year
  Sex: Female

DRUGS (7)
  1. XOLAIR [Suspect]
     Indication: ASTHMA
     Route: 058
     Dates: start: 20131021
  2. XOLAIR [Suspect]
     Route: 058
     Dates: end: 20140124
  3. ADVAIR [Concomitant]
     Dosage: 250/25
     Route: 065
  4. SPIRIVA [Concomitant]
  5. REACTINE (CANADA) [Concomitant]
  6. VENTOLIN [Concomitant]
  7. MONTELUKAST [Concomitant]

REACTIONS (6)
  - Hypersensitivity [Recovering/Resolving]
  - Pain [Unknown]
  - Fatigue [Unknown]
  - Eye swelling [Unknown]
  - Ocular hyperaemia [Unknown]
  - Pharyngeal oedema [Unknown]
